FAERS Safety Report 15211211 (Version 1)
Quarter: 2018Q3

REPORT INFORMATION
  Report Type: Spontaneous
  Country: US (occurrence: US)
  Receive Date: 20180630
  Receipt Date: 20180630
  Transmission Date: 20181010
  Serious: No
  Sender: FDA-Public Use
  Company Number: None

PATIENT
  Age: 47 Year
  Sex: Female

DRUGS (2)
  1. AMLODIPINE [Concomitant]
     Active Substance: AMLODIPINE BESYLATE
  2. PAROXETINE. [Suspect]
     Active Substance: PAROXETINE
     Route: 048

REACTIONS (2)
  - Weight increased [None]
  - Drug level fluctuating [None]

NARRATIVE: CASE EVENT DATE: 20171016
